FAERS Safety Report 10969598 (Version 1)
Quarter: 2015Q1

REPORT INFORMATION
  Report Type: Spontaneous
  Country: US (occurrence: US)
  Receive Date: 20150331
  Receipt Date: 20150331
  Transmission Date: 20150721
  Serious: No
  Sender: FDA-Public Use
  Company Number: US-BIOGENIDEC-2015BI030806

PATIENT
  Age: 45 Year
  Sex: Male

DRUGS (9)
  1. GLYCINE. [Concomitant]
     Active Substance: GLYCINE
  2. N-ACETYL-L-CYSTEINE [Concomitant]
  3. ALPHA LIPOIC ACID [Concomitant]
     Active Substance: .ALPHA.-LIPOIC ACID
  4. TECFIDERA [Suspect]
     Active Substance: DIMETHYL FUMARATE
     Indication: RELAPSING-REMITTING MULTIPLE SCLEROSIS
     Route: 048
  5. OMEGHA 3-6-9 [Concomitant]
  6. COENZYME Q10 [Concomitant]
     Active Substance: UBIDECARENONE
  7. VITAMIN D3 [Concomitant]
     Active Substance: CHOLECALCIFEROL
  8. VITAMIN B6 [Concomitant]
     Active Substance: PYRIDOXINE HYDROCHLORIDE
  9. TECFIDERA [Suspect]
     Active Substance: DIMETHYL FUMARATE
     Indication: RELAPSING-REMITTING MULTIPLE SCLEROSIS
     Route: 048
     Dates: start: 201502

REACTIONS (1)
  - Upper respiratory tract infection [Unknown]
